FAERS Safety Report 6975660-1 (Version None)
Quarter: 2010Q3

REPORT INFORMATION
  Report Type: 
  Country: None (occurrence: None)
  Receive Date: 20100910
  Receipt Date: 20100827
  Transmission Date: 20110219
  Serious: Yes (Life-Threatening, Hospitalization, Other)
  Sender: FDA-Public Use
  Company Number: GB-RANBAXY-2010RR-34550

PATIENT
  Age: 52 Year
  Sex: Male

DRUGS (8)
  1. SIMVASTATIN [Suspect]
     Dosage: 40 MG, UNK
     Route: 048
  2. FUCIDINE CAP [Suspect]
     Indication: LOCALISED INFECTION
     Dosage: 500 MG, TID
     Route: 065
  3. FUCIDINE CAP [Suspect]
     Indication: OSTEOMYELITIS
  4. FUCIDINE CAP [Suspect]
     Indication: ARTHRITIS BACTERIAL
  5. AMLODIPINE [Concomitant]
     Dosage: 10 MG, QD
     Route: 065
  6. FLOXACILLIN SODIUM [Concomitant]
     Indication: OSTEOMYELITIS
     Dosage: 500 MG, QID
     Route: 065
  7. FLOXACILLIN SODIUM [Concomitant]
     Indication: LOCALISED INFECTION
  8. HUMALOG [Concomitant]
     Indication: DIABETES MELLITUS
     Dosage: 18 DF, QD
     Route: 065

REACTIONS (2)
  - DRUG INTERACTION [None]
  - RHABDOMYOLYSIS [None]
